FAERS Safety Report 8608414-0 (Version None)
Quarter: 2012Q3

REPORT INFORMATION
  Report Type: 
  Country: None (occurrence: None)
  Receive Date: 20120821
  Receipt Date: 20120809
  Transmission Date: 20120928
  Serious: Yes (Other)
  Sender: FDA-Public Use
  Company Number: GB-ACTELION-A-CH2012-68112

PATIENT
  Age: 29 Year
  Sex: Male
  Weight: 55.2 kg

DRUGS (4)
  1. ZAVESCA [Suspect]
     Dosage: 200 MG, BID
     Route: 048
  2. ZAVESCA [Suspect]
     Indication: NIEMANN-PICK DISEASE
     Dosage: 200 MG, TID
     Route: 048
     Dates: start: 20111010
  3. ZAVESCA [Suspect]
     Dosage: 100 MG, TID
     Route: 048
  4. TRIMETHOPRIM [Concomitant]
     Dosage: UNK , UNK

REACTIONS (3)
  - CONVULSION [None]
  - DIARRHOEA [None]
  - WEIGHT DECREASED [None]
